FAERS Safety Report 5576660-9 (Version None)
Quarter: 2007Q4

REPORT INFORMATION
  Report Type: 
  Country: None (occurrence: None)
  Receive Date: 20071228
  Receipt Date: 20071218
  Transmission Date: 20080405
  Serious: Yes (Hospitalization)
  Sender: FDA-Public Use
  Company Number: US-MERCK-0706USA02105

PATIENT
  Age: 56 Year
  Sex: Female

DRUGS (3)
  1. FOSAMAX [Suspect]
     Indication: OSTEOPOROSIS
     Route: 048
     Dates: start: 20020901, end: 20030601
  2. FOSAMAX [Suspect]
     Route: 048
     Dates: start: 20030630, end: 20050101
  3. ZESTRIL [Concomitant]
     Indication: HYPERTENSION
     Route: 065

REACTIONS (9)
  - ATRIOVENTRICULAR BLOCK FIRST DEGREE [None]
  - BUNDLE BRANCH BLOCK RIGHT [None]
  - MITRAL VALVE INCOMPETENCE [None]
  - MITRAL VALVE PROLAPSE [None]
  - OEDEMA MOUTH [None]
  - PAIN IN JAW [None]
  - PARATHYROID DISORDER [None]
  - SYNOVIAL CYST [None]
  - TOOTH IMPACTED [None]
